FAERS Safety Report 12802719 (Version 3)
Quarter: 2016Q4

REPORT INFORMATION
  Report Type: Report from Study
  Country: CO (occurrence: CO)
  Receive Date: 20161003
  Receipt Date: 20161111
  Transmission Date: 20170207
  Serious: Yes (Other)
  Sender: FDA-Public Use
  Company Number: CO-BAYER-2016-189738

PATIENT
  Age: 28 Year
  Sex: Female

DRUGS (1)
  1. MIRENA [Suspect]
     Active Substance: LEVONORGESTREL
     Indication: CONTRACEPTION
     Dosage: 20 MCG/24HR, CONT
     Route: 015
     Dates: start: 20160801

REACTIONS (4)
  - Discomfort [Not Recovered/Not Resolved]
  - Device dislocation [Recovered/Resolved]
  - Abdominal pain lower [Not Recovered/Not Resolved]
  - Ovarian germ cell teratoma benign [Not Recovered/Not Resolved]

NARRATIVE: CASE EVENT DATE: 201609
